FAERS Safety Report 4831269-7 (Version None)
Quarter: 2005Q4

REPORT INFORMATION
  Report Type: 
  Country: None (occurrence: None)
  Receive Date: 20051118
  Receipt Date: 20051110
  Transmission Date: 20060501
  Serious: Yes (Hospitalization)
  Sender: FDA-Public Use
  Company Number: PHBS2005US16591

PATIENT
  Age: 50 Year
  Sex: Female

DRUGS (2)
  1. BROMOCRIPTINE MESYLATE [Suspect]
     Indication: PROLACTINOMA
     Dosage: 5 MG, BID
  2. BROMOCRIPTINE MESYLATE [Suspect]
     Dosage: 5 MG, TID

REACTIONS (5)
  - EMPTY SELLA SYNDROME [None]
  - HEMIANOPIA [None]
  - VISUAL ACUITY REDUCED [None]
  - VISUAL FIELD DEFECT [None]
  - VISUAL PATHWAY DISORDER [None]
